FAERS Safety Report 5907001-2 (Version None)
Quarter: 2008Q4

REPORT INFORMATION
  Report Type: 
  Country: None (occurrence: None)
  Receive Date: 20081003
  Receipt Date: 20080922
  Transmission Date: 20090506
  Serious: Yes (Other)
  Sender: FDA-Public Use
  Company Number: CA-PURDUE-CAN_2008_0000827

PATIENT
  Age: 28 Year
  Sex: Female

DRUGS (3)
  1. OXYCONTIN [Suspect]
     Indication: DRUG USE FOR UNKNOWN INDICATION
  2. MORPHINE SULFATE INJ [Suspect]
     Indication: DRUG USE FOR UNKNOWN INDICATION
  3. COCAINE [Suspect]
     Indication: DRUG USE FOR UNKNOWN INDICATION

REACTIONS (2)
  - DRUG DEPENDENCE [None]
  - SUICIDAL IDEATION [None]
